FAERS Safety Report 13098495 (Version 3)
Quarter: 2017Q2

REPORT INFORMATION
  Report Type: Spontaneous
  Country: FR (occurrence: FR)
  Receive Date: 20170109
  Receipt Date: 20170421
  Transmission Date: 20170830
  Serious: Yes (Hospitalization, Disabling, Other)
  Sender: FDA-Public Use
  Company Number: FR-PFIZER INC-2017000293

PATIENT
  Age: 55 Year
  Sex: Female

DRUGS (5)
  1. SOLU-MEDROL [Suspect]
     Active Substance: METHYLPREDNISOLONE SODIUM SUCCINATE
     Indication: BRONCHIAL CARCINOMA
     Dosage: 60 MG, UNK
     Route: 041
     Dates: start: 20161116, end: 20161116
  2. OPDIVO [Suspect]
     Active Substance: NIVOLUMAB
     Indication: BRONCHIAL CARCINOMA
     Dosage: 220 MG, CYCLIC ( EVERY 15 DAYS)
     Route: 042
     Dates: start: 20160721, end: 20161028
  3. POLARAMINE [Suspect]
     Active Substance: DEXCHLORPHENIRAMINE MALEATE
     Indication: BRONCHIAL CARCINOMA
     Dosage: 60 MG, UNK
     Route: 041
     Dates: start: 20161116, end: 20161116
  4. ONDANSETRON [Suspect]
     Active Substance: ONDANSETRON
     Indication: BRONCHIAL CARCINOMA
     Dosage: UNK
     Route: 041
     Dates: start: 20161116, end: 20161116
  5. TAXOTERE [Suspect]
     Active Substance: DOCETAXEL
     Indication: BRONCHIAL CARCINOMA
     Dosage: 140 MG, UNK
     Route: 041
     Dates: start: 20161116, end: 20161116

REACTIONS (1)
  - Hypofibrinogenaemia [Recovered/Resolved]

NARRATIVE: CASE EVENT DATE: 20161209
